FAERS Safety Report 7712897-8 (Version None)
Quarter: 2011Q3

REPORT INFORMATION
  Report Type: 
  Country: None (occurrence: None)
  Receive Date: 20110826
  Receipt Date: 20110824
  Transmission Date: 20111222
  Serious: Yes (Death)
  Sender: FDA-Public Use
  Company Number: PHHY2011CA73284

PATIENT
  Sex: Female

DRUGS (9)
  1. TEMAZEPAM [Concomitant]
  2. CLOZAPINE [Suspect]
     Indication: SCHIZOPHRENIA
     Dosage: 375 MG, UNK
     Route: 048
     Dates: start: 20080101
  3. FERROUS SULFATE TAB [Concomitant]
  4. SEROQUEL [Concomitant]
  5. SYNTHROID [Concomitant]
  6. BUTYLSCOPOLAMIN [Concomitant]
  7. CLOZAPINE [Suspect]
     Indication: SCHIZOAFFECTIVE DISORDER
     Dates: start: 20080619
  8. SENOKOT [Concomitant]
  9. PRILOSEC [Concomitant]

REACTIONS (1)
  - DEATH [None]
